FAERS Safety Report 9790204 (Version 2)
Quarter: 2014Q2

REPORT INFORMATION
  Report Type: Spontaneous
  Country: US (occurrence: US)
  Receive Date: 20131231
  Receipt Date: 20140423
  Transmission Date: 20141212
  Serious: Yes (Hospitalization, Other)
  Sender: FDA-Public Use
  Company Number: US-UCBSA-106784

PATIENT
  Sex: Male
  Weight: 81.6 kg

DRUGS (12)
  1. KEPPRA [Suspect]
     Indication: CONVULSION
     Dates: start: 201301
  2. ASPERIN ER [Concomitant]
     Dosage: 325 MG, 1 A DAY
  3. FOLIC ACID [Concomitant]
     Dosage: 1 MG, 1 A DAY
  4. PANTOPRAZOLE SOD DR [Concomitant]
     Dosage: 40 MG, 1 A DAY
  5. LAPITOR ATORVASTATIN [Concomitant]
     Dosage: 10 MG, 1 A DAY
  6. VITAMIN C [Concomitant]
     Dosage: 500 MG, 1 A DAY
  7. TAMSULOSIN [Concomitant]
     Dosage: 0.4 MG, 1 TWICE A DAY
  8. COLACE [Concomitant]
     Dosage: 100 MG, 2 A DAY
  9. DIALYVITE [Concomitant]
     Dosage: 800, 1 A DAY
  10. VITAMIN D [Concomitant]
     Dosage: 1 EVERY WEDNESDAY
  11. CALCIUM ACETATE [Concomitant]
     Dosage: 2 WITH MEALS, 6 TOTAL A DAY
  12. MIDODRINE HCL [Concomitant]
     Dosage: 5 MG, 2 PRIOR TO DIALYSIS (6 PER WEEK)

REACTIONS (1)
  - Renal failure [Not Recovered/Not Resolved]
